FAERS Safety Report 8974140 (Version 1)
Quarter: 2012Q4

REPORT INFORMATION
  Report Type: Spontaneous
  Country: US (occurrence: None)
  Receive Date: 20121213
  Receipt Date: 20121213
  Transmission Date: 20130627
  Serious: Yes (Life-Threatening, Hospitalization)
  Sender: FDA-Public Use
  Company Number: None

PATIENT
  Age: 85 Year
  Sex: Female

DRUGS (2)
  1. LOVENOX [Suspect]
     Route: 048
     Dates: start: 20120920, end: 20120927
  2. WARFARIN [Suspect]
     Dosage: 5 MG P

REACTIONS (5)
  - Presyncope [None]
  - Hypotension [None]
  - Vomiting [None]
  - Abdominal pain lower [None]
  - Hyperhidrosis [None]
